FAERS Safety Report 10411883 (Version 1)
Quarter: 2014Q2

REPORT INFORMATION
  Report Type: Spontaneous
  Country: US (occurrence: None)
  Receive Date: 20140604
  Receipt Date: 20140604
  Transmission Date: 20141212
  Serious: No
  Sender: FDA-Public Use
  Company Number: 163-POMAL-14040674

PATIENT
  Age: 48 Year
  Sex: Male
  Weight: 81.6 kg

DRUGS (18)
  1. POMALYST (POMALIDOMIDE) (2 MILLIGRAM, CAPSULES) [Suspect]
     Indication: PLASMA CELL MYELOMA
     Dosage: 2 MG, 21 IN 28 D, PO
     Route: 048
     Dates: start: 201402, end: 20140402
  2. AUGMENTIN (CLAVULIN) [Concomitant]
  3. CENTRUM SILVER [Concomitant]
  4. ARIXTRA (FONDAPARINUX SODIUM) [Concomitant]
  5. FLUTICASONE [Concomitant]
  6. CIPRODEX (GASTROGYL) [Concomitant]
  7. NASONEX (MOMETASONE FUROATE) [Concomitant]
  8. CEPHALEXIN (CEFALEXIN) [Concomitant]
  9. AZITHROMYCIN [Concomitant]
  10. ACYCLOVIR (ACICLOVIR) [Concomitant]
  11. OMEPRAZOLE [Concomitant]
  12. WARFARIN [Concomitant]
  13. HYDROCODONE [Concomitant]
  14. LEVAQUIN (LEVOFLOXACIN) [Concomitant]
  15. SUDGEST (OTHER THERAPEUTIC PRODUCTS) [Concomitant]
  16. CEFUROXIME [Concomitant]
  17. DAPSONE [Concomitant]
  18. CLARITHROMYCIN [Concomitant]

REACTIONS (1)
  - Adverse drug reaction [None]
